FAERS Safety Report 5807099-6 (Version None)
Quarter: 2008Q3

REPORT INFORMATION
  Report Type: 
  Country: None (occurrence: None)
  Receive Date: 20080708
  Receipt Date: 20080603
  Transmission Date: 20090109
  Serious: Yes (Disabling)
  Sender: FDA-Public Use
  Company Number: 2008EU001121

PATIENT
  Age: 20 Year
  Sex: Female

DRUGS (2)
  1. PROGRAF [Suspect]
     Indication: HEART TRANSPLANT
     Dosage: 2 DF, UID/QD, ORAL
     Route: 048
     Dates: start: 20050101
  2. MYFORTIC                   (MYCOPHENOLATE MOFETIL) [Concomitant]

REACTIONS (3)
  - DIARRHOEA [None]
  - IMMUNOSUPPRESSANT DRUG LEVEL INCREASED [None]
  - PYLORIC STENOSIS [None]
